FAERS Safety Report 4931336-3 (Version None)
Quarter: 2006Q1

REPORT INFORMATION
  Report Type: 
  Country: None (occurrence: None)
  Receive Date: 20060228
  Receipt Date: 20060223
  Transmission Date: 20060701
  Serious: Yes (Death)
  Sender: FDA-Public Use
  Company Number: 219484

PATIENT
  Age: 57 Year
  Sex: Male

DRUGS (8)
  1. XOLAIR [Suspect]
     Indication: ASTHMA
     Dosage: 300 MG, Q2W, SUBCUTANEOUS
     Route: 058
     Dates: start: 20050713
  2. PREDNISONE TAB [Concomitant]
  3. PRILOSEC [Concomitant]
  4. SINGULAIR [Concomitant]
  5. ADVAIR DISKUS (FLUTICASONE PROPIONATE, SALMETEROL XINAFOATE) [Concomitant]
  6. ALBUTEROL (ALBUTEROL/ALBUTEROL SULFATE) [Concomitant]
  7. NASONEX [Concomitant]
  8. CIPRO [Concomitant]

REACTIONS (21)
  - BRONCHITIS [None]
  - CARDIOMEGALY [None]
  - COUGH [None]
  - DIFFUSE ALVEOLAR DAMAGE [None]
  - DYSURIA [None]
  - EOSINOPHILIA [None]
  - GASTRITIS [None]
  - HEPATITIS [None]
  - HIATUS HERNIA [None]
  - HYPERHIDROSIS [None]
  - LOEFFLER'S SYNDROME [None]
  - MUSCLE DISORDER [None]
  - MYALGIA [None]
  - MYOCARDITIS [None]
  - NEPHRITIS [None]
  - OESOPHAGITIS [None]
  - PNEUMONITIS [None]
  - PROSTATITIS [None]
  - PULMONARY CONGESTION [None]
  - PULMONARY OEDEMA [None]
  - STRESS INCONTINENCE [None]
